FAERS Safety Report 16914973 (Version 4)
Quarter: 2020Q1

REPORT INFORMATION
  Report Type: Spontaneous
  Country: PT (occurrence: PT)
  Receive Date: 20191014
  Receipt Date: 20200116
  Transmission Date: 20200409
  Serious: Yes (Hospitalization, Other)
  Sender: FDA-Public Use
  Company Number: PT-MYLANLABS-2019M1096043

PATIENT
  Age: 32 Year
  Sex: Male

DRUGS (13)
  1. HALOPERIDOL. [Suspect]
     Active Substance: HALOPERIDOL
     Indication: SCHIZOPHRENIA
     Dosage: UNK
     Route: 065
  2. CHLORPROMAZINE. [Suspect]
     Active Substance: CHLORPROMAZINE
     Indication: SCHIZOPHRENIA
     Dosage: UNK
     Route: 065
  3. CLOZAPINE. [Suspect]
     Active Substance: CLOZAPINE
     Dosage: 50 MILLIGRAM
     Route: 065
  4. BIPERIDEN [Suspect]
     Active Substance: BIPERIDEN
     Indication: SCHIZOPHRENIA
     Dosage: UNK
     Route: 065
  5. CLOZAPINE. [Suspect]
     Active Substance: CLOZAPINE
     Dosage: 12.5 MILLIGRAM
     Route: 065
  6. CLOZAPINE. [Suspect]
     Active Substance: CLOZAPINE
     Dosage: 100 MILLIGRAM
     Route: 065
  7. HALOPERIDOL. [Suspect]
     Active Substance: HALOPERIDOL
     Indication: INTELLECTUAL DISABILITY
     Dosage: UNK
     Route: 065
  8. CLOZAPINE. [Suspect]
     Active Substance: CLOZAPINE
     Indication: INTELLECTUAL DISABILITY
     Dosage: UNK
     Route: 065
  9. CLOZAPINE. [Suspect]
     Active Substance: CLOZAPINE
     Indication: SCHIZOPHRENIA
     Dosage: UNK
     Route: 065
  10. BIPERIDEN [Suspect]
     Active Substance: BIPERIDEN
     Indication: INTELLECTUAL DISABILITY
     Dosage: UNK
     Route: 065
  11. CLOZAPINE. [Suspect]
     Active Substance: CLOZAPINE
     Dosage: 25 MILLIGRAM
     Route: 065
  12. OMEPRAZOLE. [Concomitant]
     Active Substance: OMEPRAZOLE
     Indication: PRODUCT USED FOR UNKNOWN INDICATION
     Dosage: UNK
  13. LORAZEPAM. [Concomitant]
     Active Substance: LORAZEPAM
     Indication: PRODUCT USED FOR UNKNOWN INDICATION
     Dosage: UNK

REACTIONS (4)
  - Abdominal pain [Unknown]
  - Colitis ischaemic [Unknown]
  - Constipation [Unknown]
  - Depressed level of consciousness [Unknown]
